FAERS Safety Report 25902405 (Version 2)
Quarter: 2025Q4

REPORT INFORMATION
  Report Type: Report from Study
  Country: EU (occurrence: EU)
  Receive Date: 20251009
  Receipt Date: 20251124
  Transmission Date: 20260117
  Serious: Yes (Other)
  Sender: JOHNSON AND JOHNSON
  Company Number: EU-JNJFOC-20251005398

PATIENT
  Age: 48 Year
  Sex: Male

DRUGS (6)
  1. SPRAVATO [Suspect]
     Active Substance: ESKETAMINE
     Indication: Depression
     Dosage: 56 MG, 17-JUL-2023, 20-JUL-2023, 24-JUL-2023, 27-JUL-2023, 31-JUL-2023, 03-AUG-2023, 07-AUG-2023, 10
     Route: 045
     Dates: start: 20230717, end: 20240115
  2. SPRAVATO [Suspect]
     Active Substance: ESKETAMINE
     Dosage: 56 MG, 20-APR-2023, 27-APR-2023, 04-MAY-2023, 11-MAY-2023, 22-MAY-2023
     Route: 045
     Dates: start: 20230420, end: 20230522
  3. SPRAVATO [Suspect]
     Active Substance: ESKETAMINE
     Dosage: 28 MG, 18-JAN-2024, 22-JAN-2024, 25-JAN-2024, 29-JAN-2024, 01-FEB-2024, 05-FEB-2024, 08-FEB-2024, 12
     Route: 045
     Dates: start: 20240118, end: 20240422
  4. SPRAVATO [Suspect]
     Active Substance: ESKETAMINE
     Dosage: 28 MG, 06-MAR-2023, 09-MAR-2023, 13-MAR-2023, 16-MAR-2023, 20-MAR-2023, 23-MAR-2023, 27-MAR-2023, 30
     Route: 045
     Dates: start: 20230306, end: 20230413
  5. SPRAVATO [Suspect]
     Active Substance: ESKETAMINE
     Dosage: 28 MG, 30-MAY-2023, 05-JUN-2023, 12-JUN-2023, 19-JUN-2023, 26-JUN-2023, 03-JUL-2023, 06-JUL-2023, 10
     Route: 045
     Dates: start: 20230530, end: 20230713
  6. SPRAVATO [Suspect]
     Active Substance: ESKETAMINE
     Dosage: 56 MG, 25-APR-2024, 29-APR-2024, 02-MAY-2024, 06-MAY-2024, 10-MAY-2024, 13-MAY-2024, 16-MAY-2024, 21
     Route: 045
     Dates: start: 20240425, end: 20250911

REACTIONS (3)
  - Suicidal ideation [Recovered/Resolved]
  - Anhedonia [Not Recovered/Not Resolved]
  - Apathy [Not Recovered/Not Resolved]

NARRATIVE: CASE EVENT DATE: 20250827
